FAERS Safety Report 9198923 (Version 2)
Quarter: 2013Q2

REPORT INFORMATION
  Report Type: Spontaneous
  Country: US (occurrence: US)
  Receive Date: 20130329
  Receipt Date: 20130501
  Transmission Date: 20140414
  Serious: No
  Sender: FDA-Public Use
  Company Number: US-009507513-1303USA010618

PATIENT
  Sex: Female

DRUGS (2)
  1. CLARITIN LIQUIGELS [Suspect]
     Indication: RHINORRHOEA
     Dosage: UNK, QAM
     Route: 048
     Dates: end: 20130228
  2. CLARITIN LIQUIGELS [Suspect]
     Indication: EYE PRURITUS

REACTIONS (1)
  - Drug ineffective [Unknown]
